FAERS Safety Report 4509261-1 (Version None)
Quarter: 2004Q4

REPORT INFORMATION
  Report Type: 
  Country: None (occurrence: None)
  Receive Date: 20041123
  Receipt Date: 20041102
  Transmission Date: 20050328
  Serious: Yes (Death, Hospitalization)
  Sender: FDA-Public Use
  Company Number: US-MERCK-0411USA00461

PATIENT
  Age: 65 Year
  Sex: Male

DRUGS (11)
  1. VIOXX [Suspect]
     Indication: RHEUMATOID ARTHRITIS
     Route: 048
     Dates: start: 20020101
  2. PREDNISONE [Concomitant]
     Route: 065
  3. INSULIN [Concomitant]
     Route: 065
  4. DIURETIC (UNSPECIFIED) [Concomitant]
     Route: 065
  5. DIGOXIN [Concomitant]
     Route: 065
  6. METHOTREXATE [Concomitant]
     Route: 065
  7. HYDROCHLOROTHIAZIDE [Concomitant]
     Route: 065
  8. COREG [Concomitant]
     Route: 065
  9. PLAQUENIL [Concomitant]
     Route: 065
  10. ZOLOFT [Concomitant]
     Route: 065
  11. LIPITOR [Concomitant]
     Route: 065

REACTIONS (1)
  - GASTRIC ULCER [None]
